FAERS Safety Report 5337688-7 (Version None)
Quarter: 2007Q2

REPORT INFORMATION
  Report Type: 
  Country: None (occurrence: None)
  Receive Date: 20070315
  Receipt Date: 20060404
  Transmission Date: 20071010
  Serious: Yes (Other)
  Sender: FDA-Public Use
  Company Number: PHEH2006US04522

PATIENT

DRUGS (1)
  1. TRILEPTAL [Suspect]

REACTIONS (2)
  - ANTINUCLEAR ANTIBODY INCREASED [None]
  - SYSTEMIC LUPUS ERYTHEMATOSUS [None]
